FAERS Safety Report 22252438 (Version 1)
Quarter: 2023Q2

REPORT INFORMATION
  Report Type: Spontaneous
  Country: KR (occurrence: KR)
  Receive Date: 20230426
  Receipt Date: 20230426
  Transmission Date: 20230721
  Serious: Yes (Hospitalization)
  Sender: FDA-Public Use
  Company Number: KR-ABBOTT-2023A-1362604

PATIENT
  Sex: Male

DRUGS (2)
  1. FENOFIBRATE [Suspect]
     Active Substance: FENOFIBRATE
     Indication: Product used for unknown indication
     Route: 048
  2. AFLOQUALONE [Suspect]
     Active Substance: AFLOQUALONE
     Indication: Product used for unknown indication
     Route: 048

REACTIONS (1)
  - Drug eruption [Unknown]
